FAERS Safety Report 6537541-7 (Version None)
Quarter: 2010Q1

REPORT INFORMATION
  Report Type: 
  Country: None (occurrence: None)
  Receive Date: 20100114
  Receipt Date: 20100104
  Transmission Date: 20100710
  Serious: Yes (Death, Other)
  Sender: FDA-Public Use
  Company Number: CH-ELI_LILLY_AND_COMPANY-CH200702004481

PATIENT
  Age: 23 Year
  Sex: Male

DRUGS (10)
  1. ZYPREXA [Suspect]
     Indication: ACUTE PSYCHOSIS
     Dosage: PER NIGHT
     Route: 065
     Dates: start: 20061013, end: 20091001
  2. ZYPREXA [Suspect]
     Dosage: 20 MG, PER NIGHT
     Route: 065
     Dates: start: 20061020, end: 20060101
  3. ZYPREXA [Suspect]
     Dosage: 30 MG, PER NIGHT
     Route: 065
     Dates: start: 20061103, end: 20061101
  4. ZYPREXA [Suspect]
     Dosage: 40 MG, PER NIGHT
     Route: 065
     Dates: start: 20061121, end: 20061222
  5. ZYPREXA [Suspect]
     Dosage: 20 MG, / NIGHT
     Route: 065
     Dates: start: 20061222, end: 20061227
  6. HALOPERIDOL [Concomitant]
     Indication: ACUTE PSYCHOSIS
     Dosage: UNK, UNKNOWN
     Route: 065
  7. HALOPERIDOL [Concomitant]
     Dosage: UNK, AS NEEDED
     Route: 065
  8. RISPERIDONE [Concomitant]
     Dosage: UNK, UNKNOWN
     Route: 065
     Dates: start: 20091229, end: 20100101
  9. IMOVANE [Concomitant]
     Dosage: UNK, UNKNOWN
     Route: 065
  10. TEMESTA [Concomitant]
     Dosage: UNK, UNKNOWN
     Route: 065
     Dates: start: 20100101

REACTIONS (4)
  - CARDIAC ARREST [None]
  - DRUG RASH WITH EOSINOPHILIA AND SYSTEMIC SYMPTOMS [None]
  - OVERDOSE [None]
  - SUICIDAL BEHAVIOUR [None]
